FAERS Safety Report 5614719-8 (Version None)
Quarter: 2008Q1

REPORT INFORMATION
  Report Type: 
  Country: None (occurrence: None)
  Receive Date: 20080131
  Receipt Date: 20080124
  Transmission Date: 20080703
  Serious: Yes (Hospitalization)
  Sender: FDA-Public Use
  Company Number: 2008-00459

PATIENT
  Age: 51 Year
  Sex: Male

DRUGS (2)
  1. METRONIDAZOLE [Suspect]
     Indication: ANAL FISTULA
     Dosage: 2 TABLET, TID, ORAL
     Route: 048
     Dates: start: 20060101, end: 20060101
  2. METRONIDAZOLE [Suspect]
     Indication: SURGERY
     Dosage: 2 TABLET, TID, ORAL
     Route: 048
     Dates: start: 20060101, end: 20060101

REACTIONS (1)
  - TOXIC ENCEPHALOPATHY [None]
